FAERS Safety Report 10244766 (Version 1)
Quarter: 2014Q2

REPORT INFORMATION
  Report Type: Spontaneous
  Country: IE (occurrence: IE)
  Receive Date: 20140618
  Receipt Date: 20140618
  Transmission Date: 20141212
  Serious: Yes (Other)
  Sender: FDA-Public Use
  Company Number: IE-DSJP-DSE-2014-111806

PATIENT
  Sex: 0

DRUGS (1)
  1. OMESAR 20 MG [Suspect]
     Indication: HYPERTENSION
     Dosage: 20 MG, QD
     Route: 048
     Dates: start: 20131118

REACTIONS (1)
  - Erectile dysfunction [Not Recovered/Not Resolved]
